FAERS Safety Report 6720082-1 (Version None)
Quarter: 2010Q2

REPORT INFORMATION
  Report Type: 
  Country: None (occurrence: None)
  Receive Date: 20100511
  Receipt Date: 20100503
  Transmission Date: 20101027
  Serious: Yes (Other)
  Sender: FDA-Public Use
  Company Number: US-AMGEN-QUU409929

PATIENT
  Sex: Male
  Weight: 118 kg

DRUGS (11)
  1. EPOGEN [Suspect]
     Indication: RENAL FAILURE CHRONIC
     Dates: start: 20080101
  2. SENSIPAR [Suspect]
     Indication: HYPERPARATHYROIDISM SECONDARY
  3. LYRICA [Concomitant]
  4. RENAGEL [Concomitant]
  5. NEPHRO-CAPS [Concomitant]
  6. ANTARA (MICRONIZED) [Concomitant]
  7. REQUIP [Concomitant]
  8. LOPRESSOR [Concomitant]
  9. COZAAR [Concomitant]
  10. MAGNESIUM OXIDE [Concomitant]
  11. IRON [Concomitant]
     Route: 042
     Dates: end: 20100301

REACTIONS (2)
  - HAEMOGLOBIN DECREASED [None]
  - PERITONITIS [None]
